FAERS Safety Report 16767571 (Version 1)
Quarter: 2019Q4

REPORT INFORMATION
  Report Type: Spontaneous
  Country: US (occurrence: US)
  Receive Date: 20190903
  Receipt Date: 20190903
  Transmission Date: 20200122
  Serious: Yes (Hospitalization)
  Sender: FDA-Public Use
  Company Number: None

PATIENT
  Age: 36 Year
  Sex: Female

DRUGS (7)
  1. TRAZODONE [Concomitant]
     Active Substance: TRAZODONE HYDROCHLORIDE
     Dates: start: 20190523
  2. TOPIRAMATE. [Concomitant]
     Active Substance: TOPIRAMATE
     Dates: start: 20190409
  3. EMGALITY [Suspect]
     Active Substance: GALCANEZUMAB-GNLM
     Dosage: ?          OTHER FREQUENCY:EVERY MONTH;?
     Route: 058
     Dates: start: 20190417
  4. DULOXETINE. [Concomitant]
     Active Substance: DULOXETINE
     Dates: start: 20190605
  5. LOW OGESTREL [Concomitant]
     Active Substance: ETHINYL ESTRADIOL\NORGESTIMATE
     Dates: start: 20190619
  6. DIAZEPAM. [Concomitant]
     Active Substance: DIAZEPAM
     Dates: start: 20190820
  7. CLONAZEPAM. [Concomitant]
     Active Substance: CLONAZEPAM
     Dates: start: 20190723

REACTIONS (1)
  - Injection site reaction [None]
